FAERS Safety Report 7130027-0 (Version None)
Quarter: 2010Q4

REPORT INFORMATION
  Report Type: 
  Country: None (occurrence: None)
  Receive Date: 20101201
  Receipt Date: 20101116
  Transmission Date: 20110411
  Serious: No
  Sender: FDA-Public Use
  Company Number: US-BIOGENIDEC-2010BI017035

PATIENT
  Age: 51 Year
  Sex: Female

DRUGS (1)
  1. TYSABRI [Suspect]
     Indication: MULTIPLE SCLEROSIS
     Route: 042
     Dates: start: 20071004

REACTIONS (5)
  - BALANCE DISORDER [None]
  - CHOLECYSTECTOMY [None]
  - GALLBLADDER DISORDER [None]
  - NAUSEA [None]
  - VITREOUS HAEMORRHAGE [None]
